FAERS Safety Report 4301089-0 (Version None)
Quarter: 2004Q1

REPORT INFORMATION
  Report Type: 
  Country: None (occurrence: None)
  Receive Date: 20040218
  Receipt Date: 20040211
  Transmission Date: 20041129
  Serious: Yes (Death, Hospitalization)
  Sender: FDA-Public Use
  Company Number: 2004198479US

PATIENT
  Age: 65 Year
  Sex: Male
  Weight: 67.1 kg

DRUGS (6)
  1. EMCYT [Suspect]
     Indication: PROSTATE CANCER
     Dosage: 280 MG, TID, ORAL
     Route: 048
     Dates: start: 20030407, end: 20030924
  2. ST1571 (ST1571/CGP57148B T35717)  ) CAPSULE [Suspect]
     Indication: PROSTATE CANCER
     Dosage: 300 MG, QD,ORAL
     Route: 048
     Dates: start: 20030407, end: 20031010
  3. DOCETAXEL [Concomitant]
  4. DEXAMETHASONE [Concomitant]
  5. COUMADIN [Concomitant]
  6. DECADRON [Concomitant]

REACTIONS (3)
  - CEREBROVASCULAR ACCIDENT [None]
  - DISSEMINATED INTRAVASCULAR COAGULATION [None]
  - HYPOTONIA [None]
